FAERS Safety Report 25254792 (Version 1)
Quarter: 2025Q2

REPORT INFORMATION
  Report Type: Spontaneous
  Country: US (occurrence: None)
  Receive Date: 20250429
  Receipt Date: 20250429
  Transmission Date: 20250717
  Serious: Yes (Other)
  Sender: FDA-CTU
  Company Number: None

PATIENT
  Age: 66 Year
  Sex: Female

DRUGS (1)
  1. OTEZLA [Suspect]
     Active Substance: APREMILAST
     Indication: Psoriasis
     Dosage: 30MG QD

REACTIONS (5)
  - Psoriasis [None]
  - Pruritus [None]
  - Onychomycosis [None]
  - Abdominal discomfort [None]
  - Wrong technique in product usage process [None]
